FAERS Safety Report 8979145 (Version 2)
Quarter: 2013Q1

REPORT INFORMATION
  Report Type: Spontaneous
  Country: US (occurrence: US)
  Receive Date: 20121221
  Receipt Date: 20130208
  Transmission Date: 20140127
  Serious: Yes (Other)
  Sender: FDA-Public Use
  Company Number: US-GLAXOSMITHKLINE-A1006069A

PATIENT
  Age: 68 Year
  Sex: Male

DRUGS (6)
  1. SORILUX [Suspect]
     Indication: PSORIASIS
     Route: 061
     Dates: start: 20120619, end: 20121213
  2. DIOVAN HCT [Suspect]
     Indication: HYPERTENSION
     Route: 048
  3. METOPROLOL TARTRATE [Concomitant]
  4. SIMVASTATIN [Concomitant]
  5. BABY ASPIRIN [Concomitant]
  6. TAMSULOSIN [Concomitant]

REACTIONS (3)
  - Nephrolithiasis [Recovering/Resolving]
  - Dysuria [Recovering/Resolving]
  - Blood urine present [Recovering/Resolving]
